FAERS Safety Report 7201989-8 (Version None)
Quarter: 2010Q4

REPORT INFORMATION
  Report Type: 
  Country: None (occurrence: None)
  Receive Date: 20101229
  Receipt Date: 20101220
  Transmission Date: 20110411
  Serious: Yes (Death)
  Sender: FDA-Public Use
  Company Number: US-JNJFOC-20101207413

PATIENT
  Age: 57 Year
  Sex: Female

DRUGS (1)
  1. DOXIL [Suspect]
     Indication: OVARIAN CANCER
     Dosage: EVERY 28 DAYS
     Route: 042

REACTIONS (2)
  - DEATH [None]
  - DYSURIA [None]
